FAERS Safety Report 11940213 (Version 5)
Quarter: 2018Q4

REPORT INFORMATION
  Report Type: Spontaneous
  Country: US (occurrence: US)
  Receive Date: 20160122
  Receipt Date: 20181218
  Transmission Date: 20190204
  Serious: Yes (Hospitalization, Other)
  Sender: FDA-Public Use
  Company Number: US-DSJP-DSU-2015-120127

PATIENT

DRUGS (2)
  1. BENICAR HCT [Suspect]
     Active Substance: HYDROCHLOROTHIAZIDE\OLMESARTAN MEDOXOMIL
     Dosage: 40/25MG, QD
     Route: 048
  2. BENICAR HCT [Suspect]
     Active Substance: HYDROCHLOROTHIAZIDE\OLMESARTAN MEDOXOMIL
     Indication: HYPERTENSION
     Dosage: 20/12.5MG, UNK
     Dates: end: 2012

REACTIONS (17)
  - Colon adenoma [Not Recovered/Not Resolved]
  - Erosive oesophagitis [Unknown]
  - Irritable bowel syndrome [Not Recovered/Not Resolved]
  - Chest pain [Not Recovered/Not Resolved]
  - Peptic ulcer [Unknown]
  - Haemorrhoids [Not Recovered/Not Resolved]
  - Impaired gastric emptying [Unknown]
  - Gastrointestinal bacterial overgrowth [Unknown]
  - Sprue-like enteropathy [Recovering/Resolving]
  - Hiatus hernia [Not Recovered/Not Resolved]
  - Laparoscopic surgery [Unknown]
  - Gastrointestinal haemorrhage [Not Recovered/Not Resolved]
  - Inflammatory bowel disease [Unknown]
  - Renal failure [Not Recovered/Not Resolved]
  - Gastrooesophageal reflux disease [Unknown]
  - Hepatomegaly [Unknown]
  - Hepatic steatosis [Not Recovered/Not Resolved]

NARRATIVE: CASE EVENT DATE: 20070101
